FAERS Safety Report 9981243 (Version 1)
Quarter: 2014Q1

REPORT INFORMATION
  Report Type: Other
  Country: FR (occurrence: FR)
  Receive Date: 20140307
  Receipt Date: 20140307
  Transmission Date: 20141002
  Serious: Yes (Death, Life-Threatening)
  Sender: FDA-Public Use
  Company Number: FR-MPIJNJ-2014JNJ000503

PATIENT
  Sex: 0

DRUGS (8)
  1. VELCADE [Suspect]
     Indication: PLASMA CELL MYELOMA
     Dosage: 1.3 MG/M2, 1/WEEK
     Route: 058
     Dates: start: 20131121, end: 20140207
  2. MELPHALAN [Concomitant]
     Dosage: UNK
     Dates: start: 20131121
  3. CORTANCYL [Concomitant]
     Dosage: UNK
     Dates: start: 20131121
  4. XARELTO [Concomitant]
  5. ESIDREX [Concomitant]
  6. CRESTOR [Concomitant]
  7. DEDROGYL [Concomitant]
  8. OXYNORMORO [Concomitant]

REACTIONS (1)
  - Encephalopathy [Fatal]
